FAERS Safety Report 25825972 (Version 2)
Quarter: 2025Q3

REPORT INFORMATION
  Report Type: Spontaneous
  Country: CN (occurrence: CN)
  Receive Date: 20250919
  Receipt Date: 20250922
  Transmission Date: 20251021
  Serious: Yes (Hospitalization, Other)
  Sender: MERCK SHARP & DOHME LLC
  Company Number: CN-009507513-2328791

PATIENT
  Age: 56 Year
  Sex: Female

DRUGS (6)
  1. KEYTRUDA [Suspect]
     Active Substance: PEMBROLIZUMAB
     Indication: Metaplastic breast carcinoma
     Route: 041
     Dates: start: 20250828, end: 20250828
  2. FLUOROURACIL [Suspect]
     Active Substance: FLUOROURACIL
     Indication: Metaplastic breast carcinoma
     Route: 042
     Dates: start: 20250820, end: 20250901
  3. SODIUM CHLORIDE [Suspect]
     Active Substance: SODIUM CHLORIDE
     Indication: Metaplastic breast carcinoma
     Dates: start: 20250828, end: 20250828
  4. SODIUM CHLORIDE [Suspect]
     Active Substance: SODIUM CHLORIDE
     Indication: Metaplastic breast carcinoma
     Dates: start: 20250820, end: 20250820
  5. RIVOCERANIB MESYLATE [Suspect]
     Active Substance: RIVOCERANIB MESYLATE
     Indication: Metaplastic breast carcinoma
     Route: 048
     Dates: start: 20250821, end: 20250905
  6. VINORELBINE TARTRATE [Suspect]
     Active Substance: VINORELBINE TARTRATE
     Indication: Metaplastic breast carcinoma
     Route: 048
     Dates: start: 20250821, end: 20250828

REACTIONS (5)
  - Leukopenia [Recovering/Resolving]
  - Thrombocytopenia [Recovering/Resolving]
  - Rash erythematous [Recovering/Resolving]
  - Neutropenia [Recovering/Resolving]
  - Product use in unapproved indication [Unknown]

NARRATIVE: CASE EVENT DATE: 20250828
